FAERS Safety Report 6663069-X (Version None)
Quarter: 2010Q1

REPORT INFORMATION
  Report Type: 
  Country: None (occurrence: None)
  Receive Date: 20100326
  Receipt Date: 20090915
  Transmission Date: 20100710
  Serious: Yes (Life-Threatening, Hospitalization)
  Sender: FDA-Public Use
  Company Number: 2009EN000256

PATIENT
  Age: 13 Year
  Sex: Male
  Weight: 94 kg

DRUGS (2)
  1. ONCASPAR [Suspect]
     Indication: LEUKAEMIA
     Dosage: 5000 IU; IM
     Route: 030
     Dates: start: 20090813, end: 20090813
  2. VINCRISTINE [Concomitant]

REACTIONS (4)
  - HYPERSENSITIVITY [None]
  - PHARYNGEAL OEDEMA [None]
  - THROAT IRRITATION [None]
  - URTICARIA [None]
